FAERS Safety Report 8406432 (Version 3)
Quarter: 2012Q4

REPORT INFORMATION
  Report Type: 
  Country: BR (occurrence: BR)
  Receive Date: 20120215
  Receipt Date: 20121011
  Transmission Date: 20130627
  Serious: Yes (Death, Hospitalization, Other)
  Sender: FDA-Public Use
  Company Number: BR-PFIZER INC-2012035991

PATIENT
  Age: 88 Year
  Sex: Female

DRUGS (1)
  1. SUTENT [Suspect]
     Indication: METASTATIC RENAL CELL CARCINOMA
     Dosage: 50 mg, 1x/day
     Route: 048
     Dates: start: 201202, end: 2012

REACTIONS (6)
  - Death [Fatal]
  - Pulmonary oedema [Unknown]
  - Delirium [Unknown]
  - Dizziness [Unknown]
  - Constipation [Unknown]
  - Urine output decreased [Unknown]
